FAERS Safety Report 5777305-5 (Version None)
Quarter: 2008Q2

REPORT INFORMATION
  Report Type: 
  Country: None (occurrence: None)
  Receive Date: 20080618
  Receipt Date: 20080606
  Transmission Date: 20081010
  Serious: Yes (Other)
  Sender: FDA-Public Use
  Company Number: PHNU2008DE01066

PATIENT
  Sex: Female
  Weight: 57 kg

DRUGS (1)
  1. ELIDEL [Suspect]
     Indication: NEURODERMATITIS
     Route: 061
     Dates: start: 20070701, end: 20070901

REACTIONS (13)
  - ALANINE AMINOTRANSFERASE INCREASED [None]
  - ASPARTATE AMINOTRANSFERASE INCREASED [None]
  - BLOOD CREATINE PHOSPHOKINASE INCREASED [None]
  - BLOOD CREATINE PHOSPHOKINASE MB INCREASED [None]
  - BLOOD LACTATE DEHYDROGENASE INCREASED [None]
  - HYPERTHERMIA MALIGNANT [None]
  - INFLUENZA LIKE ILLNESS [None]
  - MUSCLE CONTRACTURE [None]
  - MYALGIA [None]
  - MYOPATHY [None]
  - NECK PAIN [None]
  - PAIN IN EXTREMITY [None]
  - RHABDOMYOLYSIS [None]
